FAERS Safety Report 9169587 (Version 1)
Quarter: 2013Q1

REPORT INFORMATION
  Report Type: Spontaneous
  Country: JP (occurrence: JP)
  Receive Date: 20130318
  Receipt Date: 20130318
  Transmission Date: 20140127
  Serious: Yes (Death, Other)
  Sender: FDA-Public Use
  Company Number: JP-BAYER-2012-127399

PATIENT
  Age: 73 Year
  Sex: Male

DRUGS (2)
  1. NEXAVAR [Suspect]
     Indication: HEPATOCELLULAR CARCINOMA
     Dosage: DAILY DOSE 400 MG
     Route: 048
     Dates: start: 20121015, end: 20121019
  2. NEXAVAR [Suspect]
     Indication: HEPATOCELLULAR CARCINOMA
     Dosage: DAILY DOSE 200 MG
     Route: 048
     Dates: start: 20121022, end: 20121213

REACTIONS (6)
  - Hepatocellular carcinoma [Fatal]
  - Erythema multiforme [Recovering/Resolving]
  - Melaena [Recovering/Resolving]
  - Haematuria [Recovering/Resolving]
  - Muscle spasms [Not Recovered/Not Resolved]
  - Arrhythmia [Recovering/Resolving]
